FAERS Safety Report 6464471-1 (Version None)
Quarter: 2009Q4

REPORT INFORMATION
  Report Type: 
  Country: None (occurrence: None)
  Receive Date: 20091124
  Receipt Date: 20091109
  Transmission Date: 20100525
  Serious: Yes (Hospitalization)
  Sender: FDA-Public Use
  Company Number: 20090542

PATIENT
  Age: 62 Year
  Sex: Female

DRUGS (6)
  1. DEXAMETHASONE SODIUM PHOSPHATE [Suspect]
     Indication: ACUTE LYMPHOCYTIC LEUKAEMIA
     Dosage: INJECTION NOS
  2. PREDNISONE [Suspect]
  3. DOXORUBICIN HCL [Suspect]
  4. IMATINIB MESYLATE [Suspect]
  5. CYCLOPHOSPHAMIDE [Suspect]
  6. VINCRISTINE [Suspect]

REACTIONS (4)
  - FLUID RETENTION [None]
  - MYELODYSPLASTIC SYNDROME [None]
  - PERFORMANCE STATUS DECREASED [None]
  - STEM CELL TRANSPLANT [None]
